FAERS Safety Report 12746900 (Version 1)
Quarter: 2016Q3

REPORT INFORMATION
  Report Type: Spontaneous
  Country: US (occurrence: US)
  Receive Date: 20160915
  Receipt Date: 20160915
  Transmission Date: 20161109
  Serious: Yes (Other)
  Sender: FDA-Public Use
  Company Number: US-ASTELLAS-2015US033681

PATIENT
  Sex: Male

DRUGS (1)
  1. XTANDI [Suspect]
     Active Substance: ENZALUTAMIDE
     Indication: PROSTATE CANCER
     Dosage: 160 MG (40 MG X 4 TABLETS), ONCE DAILY
     Route: 065

REACTIONS (5)
  - Cognitive disorder [Unknown]
  - Fatigue [Unknown]
  - Memory impairment [Unknown]
  - Malignant neoplasm progression [Unknown]
  - Drug dose omission [Unknown]
